FAERS Safety Report 5493143-5 (Version None)
Quarter: 2007Q4

REPORT INFORMATION
  Report Type: 
  Country: None (occurrence: None)
  Receive Date: 20071022
  Receipt Date: 20071022
  Transmission Date: 20080405
  Serious: No
  Sender: FDA-Public Use
  Company Number: None

PATIENT
  Sex: Female
  Weight: 61.2356 kg

DRUGS (4)
  1. BUDEPRION SR   150 MG   TEV. [Suspect]
     Indication: DEPRESSION
     Dosage: 150 MG  ONE A DAY/WEEK    PO
     Route: 048
     Dates: start: 20070909, end: 20070912
  2. BUDEPRION SR   150 MG   TEV. [Suspect]
     Indication: SMOKING CESSATION THERAPY
     Dosage: 150 MG  ONE A DAY/WEEK    PO
     Route: 048
     Dates: start: 20070909, end: 20070912
  3. BUDEPRION SR   150 MG   TEV. [Suspect]
     Indication: DEPRESSION
     Dosage: 150 MG  ONE A DAY/WEEK    PO
     Route: 048
     Dates: start: 20071015, end: 20071018
  4. BUDEPRION SR   150 MG   TEV. [Suspect]
     Indication: SMOKING CESSATION THERAPY
     Dosage: 150 MG  ONE A DAY/WEEK    PO
     Route: 048
     Dates: start: 20071015, end: 20071018

REACTIONS (3)
  - MANIA [None]
  - PHARMACEUTICAL PRODUCT COMPLAINT [None]
  - THERAPEUTIC RESPONSE UNEXPECTED WITH DRUG SUBSTITUTION [None]
